FAERS Safety Report 4735499-4 (Version None)
Quarter: 2005Q3

REPORT INFORMATION
  Report Type: 
  Country: None (occurrence: None)
  Receive Date: 20050803
  Receipt Date: 20050711
  Transmission Date: 20060218
  Serious: Yes (Other)
  Sender: FDA-Public Use
  Company Number: USA040156504

PATIENT
  Age: 70 Year
  Sex: Female

DRUGS (2)
  1. EVISTA [Suspect]
     Dates: start: 19980101
  2. LIPITOR [Concomitant]

REACTIONS (6)
  - BLOOD PARATHYROID HORMONE INCREASED [None]
  - BREAST CYST [None]
  - BREAST MICROCALCIFICATION [None]
  - GASTROOESOPHAGEAL REFLUX DISEASE [None]
  - RETINAL TEAR [None]
  - VITREOUS FLOATERS [None]
